FAERS Safety Report 8982892 (Version 2)
Quarter: 2013Q1

REPORT INFORMATION
  Report Type: Spontaneous
  Country: JP (occurrence: JP)
  Receive Date: 20121224
  Receipt Date: 20130327
  Transmission Date: 20140127
  Serious: Yes (Life-Threatening)
  Sender: FDA-Public Use
  Company Number: JP-009507513-1212JPN007530

PATIENT
  Age: 27 Year
  Sex: Female

DRUGS (5)
  1. BETAMETHASONE SODIUM PHOSPHATE [Suspect]
     Indication: NEONATAL RESPIRATORY DISTRESS SYNDROME PROPHYLAXIS
     Dosage: 12 MG, QD
     Route: 030
  2. RITODRINE HYDROCHLORIDE [Suspect]
     Indication: THREATENED LABOUR
     Dosage: 200 MICROGRAM/MINUTE
  3. RITODRINE HYDROCHLORIDE [Suspect]
     Dosage: 150 MICROGRAM/MINUTE
  4. MAGNESIUM SULFATE [Suspect]
     Indication: THREATENED LABOUR
     Dosage: 0.5 G, QH
  5. MAGNESIUM SULFATE [Suspect]
     Dosage: 0.8 G, QH

REACTIONS (2)
  - Pulmonary oedema [Recovering/Resolving]
  - Maternal drugs affecting foetus [Unknown]
